FAERS Safety Report 18990254 (Version 1)
Quarter: 2021Q1

REPORT INFORMATION
  Report Type: Report from Study
  Country: FR (occurrence: FR)
  Receive Date: 20210310
  Receipt Date: 20210310
  Transmission Date: 20210420
  Serious: Yes (Other)
  Sender: FDA-Public Use
  Company Number: FR-JNJFOC-20201242713

PATIENT
  Age: 35 Year
  Sex: Male

DRUGS (27)
  1. SPRAVATO [Suspect]
     Active Substance: ESKETAMINE
     Dates: start: 20210105, end: 20210105
  2. SPRAVATO [Suspect]
     Active Substance: ESKETAMINE
     Dates: start: 20210112, end: 20210112
  3. PAROXETINE. [Concomitant]
     Active Substance: PAROXETINE
     Indication: ANTIDEPRESSANT THERAPY
     Route: 065
  4. PRAMIPEXOLE. [Concomitant]
     Active Substance: PRAMIPEXOLE
     Route: 065
     Dates: start: 20200930
  5. SPRAVATO [Suspect]
     Active Substance: ESKETAMINE
     Dates: start: 20201119, end: 20201119
  6. SPRAVATO [Suspect]
     Active Substance: ESKETAMINE
     Dates: start: 20201127, end: 20201127
  7. VALPROIC ACID. [Concomitant]
     Active Substance: VALPROIC ACID
     Indication: ANTIDEPRESSANT THERAPY
     Route: 065
  8. LITHIUM. [Concomitant]
     Active Substance: LITHIUM
     Indication: ANTIDEPRESSANT THERAPY
     Route: 065
  9. SPRAVATO [Suspect]
     Active Substance: ESKETAMINE
     Indication: DEPRESSION
     Dates: start: 20201117, end: 20201117
  10. OXAZEPAM. [Concomitant]
     Active Substance: OXAZEPAM
     Route: 065
     Dates: start: 20201217
  11. SPRAVATO [Suspect]
     Active Substance: ESKETAMINE
     Dates: start: 20201211, end: 20201211
  12. SPRAVATO [Suspect]
     Active Substance: ESKETAMINE
     Dates: start: 20201221, end: 20201221
  13. SPRAVATO [Suspect]
     Active Substance: ESKETAMINE
     Dates: start: 20210202, end: 20210202
  14. SERTRALINE [Concomitant]
     Active Substance: SERTRALINE HYDROCHLORIDE
     Route: 065
     Dates: start: 20201130
  15. VENLAFAXINE [Concomitant]
     Active Substance: VENLAFAXINE HYDROCHLORIDE
     Indication: ANTIDEPRESSANT THERAPY
     Route: 065
  16. PRAMIPEXOLE. [Concomitant]
     Active Substance: PRAMIPEXOLE
     Indication: SEDATIVE THERAPY
     Route: 065
     Dates: start: 20200909
  17. SPRAVATO [Suspect]
     Active Substance: ESKETAMINE
     Dates: start: 20201123, end: 20201123
  18. SPRAVATO [Suspect]
     Active Substance: ESKETAMINE
     Dates: start: 20201208, end: 20201208
  19. SPRAVATO [Suspect]
     Active Substance: ESKETAMINE
     Dates: start: 20201203, end: 20201203
  20. SPRAVATO [Suspect]
     Active Substance: ESKETAMINE
     Dates: start: 20201217, end: 20201217
  21. SERTRALINE [Concomitant]
     Active Substance: SERTRALINE HYDROCHLORIDE
     Indication: ANTIDEPRESSANT THERAPY
     Route: 065
  22. SERTRALINE [Concomitant]
     Active Substance: SERTRALINE HYDROCHLORIDE
     Route: 065
     Dates: start: 20200930
  23. LAMOTRIGINE. [Concomitant]
     Active Substance: LAMOTRIGINE
     Indication: DRUG THERAPY
     Route: 065
     Dates: start: 20200909
  24. SPRAVATO [Suspect]
     Active Substance: ESKETAMINE
     Dates: start: 20201228, end: 20201228
  25. SPRAVATO [Suspect]
     Active Substance: ESKETAMINE
     Dates: start: 20210121, end: 20210121
  26. OXAZEPAM. [Concomitant]
     Active Substance: OXAZEPAM
     Indication: ANXIOLYTIC THERAPY
     Route: 065
     Dates: end: 20201217
  27. SPRAVATO [Suspect]
     Active Substance: ESKETAMINE
     Dates: start: 20210126, end: 20210126

REACTIONS (3)
  - Somnolence [Recovered/Resolved]
  - Drug dependence [Unknown]
  - Blood pressure increased [Recovered/Resolved]

NARRATIVE: CASE EVENT DATE: 20201119
